FAERS Safety Report 8628641 (Version 2)
Quarter: 2012Q4

REPORT INFORMATION
  Report Type: 
  Country: PL (occurrence: PL)
  Receive Date: 20120621
  Receipt Date: 20121108
  Transmission Date: 20130627
  Serious: Yes (Life-Threatening, Hospitalization)
  Sender: FDA-Public Use
  Company Number: PL-ROCHE-1079700

PATIENT
  Age: 58 Year
  Sex: Female
  Weight: 54 kg

DRUGS (6)
  1. MABTHERA [Suspect]
     Indication: RHEUMATOID ARTHRITIS
     Dosage: last infusion of Mabthera was taken on 10/May/2012
     Route: 042
     Dates: start: 20110331, end: 20120510
  2. POLPRAZOL [Concomitant]
     Indication: RHEUMATOID ARTHRITIS
     Route: 048
     Dates: start: 2008
  3. MEDROL [Concomitant]
     Indication: RHEUMATOID ARTHRITIS
     Route: 048
     Dates: start: 2008
  4. OSTENIL (POLAND) [Concomitant]
     Indication: RHEUMATOID ARTHRITIS
     Route: 065
     Dates: start: 2008
  5. OSTENIL (POLAND) [Concomitant]
     Indication: OSTEOPOROSIS
  6. METHOTREXATE [Concomitant]
     Indication: RHEUMATOID ARTHRITIS
     Route: 048
     Dates: start: 2008

REACTIONS (1)
  - Ischaemic stroke [Recovering/Resolving]
